FAERS Safety Report 6427403-8 (Version None)
Quarter: 2009Q4

REPORT INFORMATION
  Report Type: 
  Country: None (occurrence: None)
  Receive Date: 20091104
  Receipt Date: 20091028
  Transmission Date: 20100525
  Serious: Yes (Death)
  Sender: FDA-Public Use
  Company Number: US-PFIZER INC-2009248894

PATIENT
  Sex: Male
  Weight: 86.168 kg

DRUGS (9)
  1. REVATIO [Suspect]
     Indication: PULMONARY ARTERIAL HYPERTENSION
     Dosage: 20 MG, 3X/DAY
  2. ATENOLOL [Concomitant]
  3. SIMVASTATIN [Concomitant]
  4. PROTONIX [Concomitant]
     Dosage: UNK
  5. PREDNISONE [Concomitant]
     Dosage: UNK
  6. SPIRIVA [Concomitant]
     Dosage: UNK
  7. ADVAIR DISKUS 100/50 [Concomitant]
     Dosage: UNK
  8. ALBUTEROL [Concomitant]
     Dosage: UNK
  9. OXYGEN [Concomitant]
     Dosage: UNK

REACTIONS (1)
  - NON-SMALL CELL LUNG CANCER RECURRENT [None]
